FAERS Safety Report 12313604 (Version 2)
Quarter: 2016Q2

REPORT INFORMATION
  Report Type: Spontaneous
  Country: JP (occurrence: JP)
  Receive Date: 20160428
  Receipt Date: 20160614
  Transmission Date: 20160815
  Serious: No
  Sender: FDA-Public Use
  Company Number: JP-PFIZER INC-2016217367

PATIENT
  Age: 80 Year
  Sex: Female

DRUGS (2)
  1. SELARA 25MG [Suspect]
     Active Substance: EPLERENONE
     Dosage: 25 MG, 1X/DAY
     Route: 048
     Dates: start: 20160421, end: 20160519
  2. SELARA 25MG [Suspect]
     Active Substance: EPLERENONE
     Dosage: 25 MG, 2X/DAY
     Route: 048
     Dates: end: 20160421

REACTIONS (2)
  - Product use issue [Unknown]
  - Blood potassium increased [Recovered/Resolved]

NARRATIVE: CASE EVENT DATE: 20160324
